FAERS Safety Report 19430410 (Version 1)
Quarter: 2021Q2

REPORT INFORMATION
  Report Type: Report from Study
  Country: US (occurrence: US)
  Receive Date: 20210617
  Receipt Date: 20210617
  Transmission Date: 20210717
  Serious: Yes (Other)
  Sender: FDA-Public Use
  Company Number: US-JAZZ-2020-US-004411

PATIENT
  Sex: Female

DRUGS (24)
  1. XYREM [Suspect]
     Active Substance: SODIUM OXYBATE
     Indication: NARCOLEPSY
     Dosage: 2.25 GRAM, BID
     Route: 048
     Dates: start: 201508, end: 201508
  2. XYREM [Suspect]
     Active Substance: SODIUM OXYBATE
     Dosage: 4.5 GRAM, BID
     Route: 048
     Dates: start: 201508
  3. LINZESS [Concomitant]
     Active Substance: LINACLOTIDE
  4. MIRTAZAPINE. [Concomitant]
     Active Substance: MIRTAZAPINE
  5. PARAGARD T 380A [Concomitant]
     Active Substance: COPPER
  6. BUSPIRONE HCL [Concomitant]
     Active Substance: BUSPIRONE HYDROCHLORIDE
  7. LITHIUM CARBONATE. [Concomitant]
     Active Substance: LITHIUM CARBONATE
  8. XYREM [Suspect]
     Active Substance: SODIUM OXYBATE
     Dosage: DOSE ADJUSTMENT
     Route: 048
     Dates: start: 201508, end: 201508
  9. VALIUM [Concomitant]
     Active Substance: DIAZEPAM
  10. GENERESS FE [Concomitant]
     Active Substance: ETHINYL ESTRADIOL\NORETHINDRONE
  11. IRON [Concomitant]
     Active Substance: IRON
  12. PERCOCET [OXYCODONE HYDROCHLORIDE;OXYCODONE TEREPHTHALATE;PARACETAMOL] [Concomitant]
     Active Substance: ACETAMINOPHEN\OXYCODONE HYDROCHLORIDE\OXYCODONE TEREPHTHALATE
  13. INDERAL LA [Concomitant]
     Active Substance: PROPRANOLOL HYDROCHLORIDE
  14. XANAX [Concomitant]
     Active Substance: ALPRAZOLAM
  15. PROVIGIL [Concomitant]
     Active Substance: MODAFINIL
  16. GEODON [Concomitant]
     Active Substance: ZIPRASIDONE HYDROCHLORIDE\ZIPRASIDONE MESYLATE
  17. COLACE [Concomitant]
     Active Substance: DOCUSATE SODIUM
  18. ZYRTEC [Concomitant]
     Active Substance: CETIRIZINE HYDROCHLORIDE
  19. BIOTIN [Concomitant]
     Active Substance: BIOTIN
  20. MELATONIN [Concomitant]
     Active Substance: MELATONIN
  21. NUVIGIL [Concomitant]
     Active Substance: ARMODAFINIL
  22. HYDROXYZINE HCL [Concomitant]
     Active Substance: HYDROXYZINE HYDROCHLORIDE
  23. DEXTROAMPHETAMINE [DEXAMFETAMINE] [Concomitant]
     Active Substance: DEXTROAMPHETAMINE
  24. VYVANSE [Concomitant]
     Active Substance: LISDEXAMFETAMINE DIMESYLATE

REACTIONS (1)
  - Sjogren^s syndrome [Unknown]
